FAERS Safety Report 7552804-4 (Version None)
Quarter: 2011Q2

REPORT INFORMATION
  Report Type: 
  Country: None (occurrence: None)
  Receive Date: 20110616
  Receipt Date: 20110614
  Transmission Date: 20111010
  Serious: Yes (Life-Threatening, Hospitalization)
  Sender: FDA-Public Use
  Company Number: GXKR2011DE01995

PATIENT
  Age: 59 Year
  Sex: Female

DRUGS (5)
  1. AMITRIPTYLINE HYDROCHLORIDE [Suspect]
     Indication: ANALGESIC THERAPY
     Dosage: 50 MG/DAY
     Route: 048
     Dates: start: 20101224, end: 20101227
  2. ENOXAPARIN SODIUM [Concomitant]
     Route: 058
  3. MORPHINE [Concomitant]
     Indication: ANALGESIC THERAPY
     Dosage: 20-30 MG/DAY
     Route: 048
  4. METAMIZOLE [Suspect]
     Indication: ANALGESIC THERAPY
     Dosage: 4000 MG/DAY
     Route: 048
     Dates: start: 20101222, end: 20101230
  5. LYRICA [Suspect]
     Indication: ANALGESIC THERAPY
     Dosage: 2 DF/DAY
     Route: 048
     Dates: start: 20101224, end: 20101227

REACTIONS (8)
  - PNEUMONIA [None]
  - LEUKOPENIA [None]
  - APLASTIC ANAEMIA [None]
  - PANCYTOPENIA [None]
  - THROMBOCYTOPENIA [None]
  - ANAEMIA [None]
  - AGRANULOCYTOSIS [None]
  - URINARY TRACT INFECTION [None]
